FAERS Safety Report 20987978 (Version 1)
Quarter: 2022Q2

REPORT INFORMATION
  Report Type: Spontaneous
  Country: US (occurrence: None)
  Receive Date: 20220620
  Receipt Date: 20220620
  Transmission Date: 20220720
  Serious: Yes (Other)
  Sender: FDA-Public Use
  Company Number: None

PATIENT
  Age: 41 Year
  Sex: Female
  Weight: 90 kg

DRUGS (11)
  1. DUPIXENT [Suspect]
     Active Substance: DUPILUMAB
     Indication: Aspirin-exacerbated respiratory disease
     Dosage: OTHER QUANTITY : 1 INJECTION(S);?OTHER FREQUENCY : EVERY TWO WEEKS;?
     Route: 058
     Dates: start: 20220110, end: 20220207
  2. Enscyce [Concomitant]
  3. Symbiacort [Concomitant]
  4. ProAir abuterol inhaler [Concomitant]
  5. EPIPEN [Concomitant]
     Active Substance: EPINEPHRINE
  6. Budesonide ampules [Concomitant]
  7. ALLEGRA [Concomitant]
     Active Substance: FEXOFENADINE HYDROCHLORIDE
  8. VITAMIN D3 [Concomitant]
     Active Substance: CHOLECALCIFEROL
  9. VITAMIN C [Concomitant]
     Active Substance: ASCORBIC ACID
  10. ZINC [Concomitant]
     Active Substance: ZINC
  11. BIOTIN [Concomitant]
     Active Substance: BIOTIN

REACTIONS (11)
  - Paraesthesia [None]
  - Paraesthesia oral [None]
  - Paraesthesia oral [None]
  - Paraesthesia oral [None]
  - Dry eye [None]
  - Vision blurred [None]
  - Swelling of eyelid [None]
  - Angiopathy [None]
  - Vascular pain [None]
  - Weight decreased [None]
  - Alopecia [None]

NARRATIVE: CASE EVENT DATE: 20220207
